FAERS Safety Report 22000239 (Version 2)
Quarter: 2023Q1

REPORT INFORMATION
  Report Type: Spontaneous
  Country: GB (occurrence: GB)
  Receive Date: 20230216
  Receipt Date: 20230223
  Transmission Date: 20230418
  Serious: Yes (Other)
  Sender: FDA-Public Use
  Company Number: GB-AstraZeneca-2023A026178

PATIENT
  Sex: Female

DRUGS (13)
  1. OMEPRAZOLE [Suspect]
     Active Substance: OMEPRAZOLE
     Indication: Product used for unknown indication
     Route: 048
  2. TAGRISSO [Suspect]
     Active Substance: OSIMERTINIB
     Indication: Lung adenocarcinoma
     Route: 048
  3. AMITRIPTYLINE PAMOATE [Concomitant]
     Active Substance: AMITRIPTYLINE PAMOATE
     Indication: Product used for unknown indication
  4. BISACODYL [Concomitant]
     Active Substance: BISACODYL
     Indication: Product used for unknown indication
  5. CLONAZEPAM [Concomitant]
     Active Substance: CLONAZEPAM
     Indication: Product used for unknown indication
  6. COCODAMOL [Concomitant]
     Active Substance: ACETAMINOPHEN\CODEINE PHOSPHATE
     Indication: Product used for unknown indication
  7. LAMOTRIGINE [Concomitant]
     Active Substance: LAMOTRIGINE
     Indication: Product used for unknown indication
  8. LANSOPRAZOLE [Concomitant]
     Active Substance: LANSOPRAZOLE
     Indication: Product used for unknown indication
  9. METFORMIN [Concomitant]
     Active Substance: METFORMIN HYDROCHLORIDE
     Indication: Product used for unknown indication
  10. PHENYTOIN SODIUM [Concomitant]
     Active Substance: PHENYTOIN SODIUM
     Indication: Product used for unknown indication
  11. TAPENTADOL [Concomitant]
     Active Substance: TAPENTADOL
     Indication: Product used for unknown indication
  12. CODEINE PHOSPHATE [Concomitant]
     Active Substance: CODEINE PHOSPHATE
     Indication: Product used for unknown indication
  13. ACETAMINOPHEN [Concomitant]
     Active Substance: ACETAMINOPHEN
     Indication: Product used for unknown indication

REACTIONS (2)
  - Malignant neoplasm progression [Unknown]
  - Blood alkaline phosphatase abnormal [Unknown]
